FAERS Safety Report 7594251-5 (Version None)
Quarter: 2011Q3

REPORT INFORMATION
  Report Type: 
  Country: None (occurrence: None)
  Receive Date: 20110706
  Receipt Date: 20110706
  Transmission Date: 20111222
  Serious: Yes (Hospitalization)
  Sender: FDA-Public Use
  Company Number: None

PATIENT
  Age: 89 Year
  Sex: Female
  Weight: 89.811 kg

DRUGS (1)
  1. PRADAXA [Suspect]
     Indication: ATRIAL FIBRILLATION
     Dosage: 150MG
     Route: 048

REACTIONS (8)
  - ASTHENIA [None]
  - BLOOD UREA INCREASED [None]
  - GLOMERULAR FILTRATION RATE DECREASED [None]
  - FAECES DISCOLOURED [None]
  - HAEMATEMESIS [None]
  - BLOOD CREATININE INCREASED [None]
  - HAEMATOCRIT DECREASED [None]
  - HAEMOGLOBIN DECREASED [None]
